FAERS Safety Report 16485711 (Version 1)
Quarter: 2019Q2

REPORT INFORMATION
  Report Type: Spontaneous
  Country: US (occurrence: US)
  Receive Date: 20190627
  Receipt Date: 20190627
  Transmission Date: 20190711
  Serious: No
  Sender: FDA-Public Use
  Company Number: US-SA-2019SA174010

PATIENT
  Age: 27 Year
  Sex: Male

DRUGS (6)
  1. AZELASTINE [AZELASTINE HYDROCHLORIDE] [Concomitant]
  2. DOXEPIN HCL [Concomitant]
     Active Substance: DOXEPIN HYDROCHLORIDE
  3. FLUTICASONE [FLUTICASONE PROPIONATE] [Concomitant]
  4. MONTELUKAST [Concomitant]
     Active Substance: MONTELUKAST SODIUM
  5. DUPIXENT [Suspect]
     Active Substance: DUPILUMAB
     Indication: DERMATITIS ATOPIC
     Dosage: 600 MG, 1X
     Route: 058
     Dates: start: 20190613, end: 20190613
  6. DESOXIMETASON [Concomitant]
     Active Substance: DESOXIMETASONE

REACTIONS (2)
  - Rash pustular [Not Recovered/Not Resolved]
  - Dermatitis [Not Recovered/Not Resolved]
